FAERS Safety Report 15689102 (Version 2)
Quarter: 2019Q1

REPORT INFORMATION
  Report Type: Report from Study
  Country: None (occurrence: BR)
  Receive Date: 20181205
  Receipt Date: 20190224
  Transmission Date: 20190417
  Serious: Yes (Hospitalization, Other)
  Sender: FDA-Public Use
  Company Number: BR-ABBVIE-18K-020-2575294-00

PATIENT
  Age: 39 Year
  Sex: Female
  Weight: 68 kg

DRUGS (3)
  1. RIFAMPICIN + ISONIAZID + PYRAZINAMIDE + ETHAM [Concomitant]
     Active Substance: ETHAMBUTOL\ISONIAZID\PYRAZINAMIDE\RIFAMPIN
     Indication: TUBERCULOSIS
  2. HUMIRA [Suspect]
     Active Substance: ADALIMUMAB
     Indication: ANKYLOSING SPONDYLITIS
     Route: 058
     Dates: start: 20150921, end: 201809
  3. PANTOPRAZOLE [Concomitant]
     Active Substance: PANTOPRAZOLE
     Indication: GASTRITIS

REACTIONS (10)
  - Malaise [Recovered/Resolved]
  - Dyspnoea [Recovered/Resolved]
  - Pyrexia [Recovered/Resolved]
  - Intestinal tuberculosis [Unknown]
  - Thyroiditis [Recovered/Resolved]
  - Pulmonary tuberculosis [Unknown]
  - Pneumonia [Recovered/Resolved]
  - Abdominal distension [Recovering/Resolving]
  - Pleural effusion [Recovered/Resolved]
  - Immunodeficiency [Unknown]

NARRATIVE: CASE EVENT DATE: 201807
